FAERS Safety Report 6658343-7 (Version None)
Quarter: 2010Q1

REPORT INFORMATION
  Report Type: 
  Country: None (occurrence: None)
  Receive Date: 20100330
  Receipt Date: 20100301
  Transmission Date: 20100710
  Serious: No
  Sender: FDA-Public Use
  Company Number: US-BIOGENIDEC-2010BI007058

PATIENT
  Age: 58 Year
  Sex: Female

DRUGS (3)
  1. TYSABRI [Suspect]
     Indication: MULTIPLE SCLEROSIS
     Route: 042
     Dates: start: 20080611, end: 20081229
  2. TYSABRI [Suspect]
     Route: 042
     Dates: start: 20100108
  3. EYE DROPS [Concomitant]
     Indication: LACRIMATION INCREASED

REACTIONS (2)
  - PANIC ATTACK [None]
  - URINARY TRACT INFECTION [None]
